FAERS Safety Report 8495407-X (Version None)
Quarter: 2012Q3

REPORT INFORMATION
  Report Type: 
  Country: None (occurrence: None)
  Receive Date: 20120709
  Receipt Date: 20120627
  Transmission Date: 20120928
  Serious: Yes (Hospitalization)
  Sender: FDA-Public Use
  Company Number: US-MSD-1206USA05571

PATIENT

DRUGS (24)
  1. REBETOL [Suspect]
     Dosage: 3 UNK, UNK
     Route: 048
     Dates: start: 20120111, end: 20120406
  2. REBETOL [Suspect]
     Dosage: 2 UNK, UNK
     Route: 048
     Dates: start: 20120407, end: 20120531
  3. PLACEBO [Suspect]
     Dosage: UNK UNK, QD
     Dates: start: 20120111, end: 20120404
  4. BLINDED THERAPY [Suspect]
     Dosage: UNK UNK, QD
     Dates: start: 20120111, end: 20120404
  5. BLINDED THERAPY [Suspect]
     Dosage: UNK UNK, QD
     Dates: start: 20120111, end: 20120404
  6. BLINDED THERAPY [Suspect]
     Dosage: UNK UNK, QD
     Dates: start: 20120111, end: 20120404
  7. REBETOL [Suspect]
     Dosage: 2 UNK, UNK
     Route: 048
     Dates: start: 20120411, end: 20120416
  8. REBETOL [Suspect]
     Dosage: 2 UNK, UNK
     Route: 048
     Dates: start: 20120501, end: 20120531
  9. REBETOL [Suspect]
     Dosage: 3 DF, UNK
     Route: 048
     Dates: start: 20120111, end: 20120112
  10. PEG-INTRON [Suspect]
     Indication: HEPATITIS C
     Dosage: UNK, QW
     Route: 048
     Dates: start: 20120111, end: 20120522
  11. BLINDED THERAPY [Suspect]
     Dosage: 4 UNK, TID
     Route: 048
     Dates: start: 20120208, end: 20120404
  12. BLINDED PRE TRIAL THERAPY [Suspect]
     Dosage: UNK UNK, QD
     Dates: start: 20120111, end: 20120404
  13. RIBAVIRIN [Suspect]
     Dosage: UNK UNK, QD
     Dates: start: 20120111, end: 20120404
  14. BLINDED THERAPY [Suspect]
     Dosage: UNK UNK, QD
     Dates: start: 20120111, end: 20120404
  15. REBETOL [Suspect]
     Dosage: 3 UNK, UNK
     Route: 048
     Dates: start: 20120417, end: 20120430
  16. BLINDED POST TRIAL THERAPY [Suspect]
     Dosage: UNK UNK, QD
     Dates: start: 20120111, end: 20120404
  17. BLINDED THERAPY [Suspect]
     Indication: HEPATITIS C
     Dosage: UNK UNK, QD
     Dates: start: 20120111, end: 20120404
  18. REBETOL [Suspect]
     Indication: HEPATITIS C
     Dosage: 3 UNK, UNK
     Route: 048
     Dates: start: 20120112, end: 20120410
  19. BLINDED THERAPY [Suspect]
     Dosage: UNK UNK, QD
     Dates: start: 20120111, end: 20120404
  20. BLINDED THERAPY [Suspect]
     Dosage: UNK UNK, QD
     Dates: start: 20120111, end: 20120404
  21. PEGINTERFERON ALFA-2B [Suspect]
     Dosage: UNK UNK, QD
     Dates: start: 20120111, end: 20120404
  22. PROTONIX [Concomitant]
     Indication: GASTROOESOPHAGEAL REFLUX DISEASE
     Dosage: 10 MG, PRN
     Route: 048
     Dates: start: 20071201
  23. BLINDED BOCEPREVIR [Suspect]
     Dosage: UNK UNK, QD
     Dates: start: 20120111, end: 20120404
  24. BLINDED MK-5172 [Suspect]
     Dosage: UNK UNK, QD
     Dates: start: 20120111, end: 20120404

REACTIONS (1)
  - BRONCHITIS [None]
